FAERS Safety Report 8508859-3 (Version None)
Quarter: 2012Q3

REPORT INFORMATION
  Report Type: 
  Country: None (occurrence: None)
  Receive Date: 20120713
  Receipt Date: 20120709
  Transmission Date: 20120928
  Serious: Yes (Hospitalization, Other)
  Sender: FDA-Public Use
  Company Number: PHHY2011BR45618

PATIENT
  Sex: Male
  Weight: 68 kg

DRUGS (7)
  1. AKINETON [Concomitant]
     Indication: PARKINSON'S DISEASE
     Dosage: 2 MG, 2 DF,DAILY
  2. NEXIUM [Concomitant]
     Indication: GASTRIC DISORDER
     Dosage: 1 DF, QHS
     Route: 048
     Dates: start: 20090101
  3. CLOZAPINE [Suspect]
     Indication: SCHIZOPHRENIA
     Dosage: TWO TABLETS IN THE MORNING AND 7 AT NIGHT
     Route: 048
     Dates: start: 20100601
  4. MOTILIUM [Concomitant]
     Indication: CONSTIPATION
     Dosage: ONE TABLET A DAY
     Route: 048
     Dates: start: 20090101
  5. BENEFIBER [Concomitant]
     Indication: CONSTIPATION
     Dosage: MORE THAN 14 GR
     Route: 048
     Dates: start: 20090827
  6. CLOZAPINE [Suspect]
     Indication: PERSECUTORY DELUSION
     Dosage: UNK UKN, UNK
     Dates: start: 20090601
  7. DIAZEPAM [Concomitant]
     Indication: ANXIETY
     Dosage: HALF TABLET TWICE A DAY
     Route: 048
     Dates: start: 20090101

REACTIONS (10)
  - CATATONIA [None]
  - PANIC DISORDER [None]
  - ANXIETY [None]
  - TARDIVE DYSKINESIA [None]
  - DYSPNOEA [None]
  - CARDIAC DISCOMFORT [None]
  - CONVULSION [None]
  - CRYING [None]
  - DRUG INEFFECTIVE [None]
  - FEAR [None]
